FAERS Safety Report 10172863 (Version 2)
Quarter: 2014Q3

REPORT INFORMATION
  Report Type: Report from Study
  Country: CN (occurrence: CN)
  Receive Date: 20140515
  Receipt Date: 20140820
  Transmission Date: 20150326
  Serious: Yes (Hospitalization)
  Sender: FDA-Public Use
  Company Number: CN-ROCHE-1398656

PATIENT
  Age: 57 Year
  Sex: Female

DRUGS (2)
  1. TRASTUZUMAB [Suspect]
     Active Substance: TRASTUZUMAB
     Indication: BREAST CANCER METASTATIC
     Dosage: INITAL DOSAGE WAS 505 MG
     Route: 041
     Dates: start: 20131122
  2. TRASTUZUMAB [Suspect]
     Active Substance: TRASTUZUMAB
     Route: 041
     Dates: start: 20140706

REACTIONS (7)
  - Splenomegaly [Recovered/Resolved]
  - Chills [Recovering/Resolving]
  - Cholecystitis chronic [Recovered/Resolved]
  - Pyrexia [Recovering/Resolving]
  - White blood cell count decreased [Recovered/Resolved]
  - Metastases to liver [Recovered/Resolved]
  - Cholelithiasis [Recovered/Resolved]

NARRATIVE: CASE EVENT DATE: 201403
